FAERS Safety Report 8178860-0 (Version None)
Quarter: 2012Q1

REPORT INFORMATION
  Report Type: 
  Country: None (occurrence: None)
  Receive Date: 20120302
  Receipt Date: 20120222
  Transmission Date: 20120608
  Serious: Yes (Hospitalization, Other)
  Sender: FDA-Public Use
  Company Number: DE-BIOGENIDEC-2011BI043073

PATIENT
  Age: 37 Year
  Sex: Male

DRUGS (6)
  1. TYSABRI [Suspect]
     Indication: RELAPSING-REMITTING MULTIPLE SCLEROSIS
     Route: 042
     Dates: start: 20110531, end: 20111028
  2. PANTOPRAZOLE [Concomitant]
  3. UROREC [Concomitant]
  4. IBUPROFEN TABLETS [Concomitant]
  5. MIRTAZAPINE [Concomitant]
  6. CITALOPRAM HYDROBROMIDE [Concomitant]

REACTIONS (1)
  - TESTICULAR ABSCESS [None]
